FAERS Safety Report 13917859 (Version 1)
Quarter: 2017Q3

REPORT INFORMATION
  Report Type: Spontaneous
  Country: US (occurrence: US)
  Receive Date: 20170829
  Receipt Date: 20170829
  Transmission Date: 20171127
  Serious: No
  Sender: FDA-Public Use
  Company Number: US-PFIZER INC-2017366855

PATIENT
  Sex: Female

DRUGS (1)
  1. NARDIL [Suspect]
     Active Substance: PHENELZINE SULFATE
     Dosage: 2 X15MG TABLETS, PLUS 1 SPLIT 15 MG TABLETS (ABOUT 7.5MG)

REACTIONS (2)
  - Drug effect incomplete [Unknown]
  - Wrong technique in product usage process [Unknown]
